FAERS Safety Report 7775475-0 (Version None)
Quarter: 2011Q3

REPORT INFORMATION
  Report Type: 
  Country: None (occurrence: None)
  Receive Date: 20110923
  Receipt Date: 20110920
  Transmission Date: 20111222
  Serious: Yes (Hospitalization)
  Sender: FDA-Public Use
  Company Number: PHHY2011SK83990

PATIENT
  Sex: Female

DRUGS (1)
  1. ZOLEDRONOC ACID [Suspect]
     Indication: OSTEOPOROSIS POSTMENOPAUSAL
     Dosage: UNK
     Route: 042
     Dates: start: 20100924

REACTIONS (5)
  - CHILLS [None]
  - SINUS TACHYCARDIA [None]
  - HEART RATE INCREASED [None]
  - PALPITATIONS [None]
  - HYPERTENSION [None]
